FAERS Safety Report 4999389-4 (Version None)
Quarter: 2006Q2

REPORT INFORMATION
  Report Type: 
  Country: None (occurrence: None)
  Receive Date: 20060509
  Receipt Date: 20060509
  Transmission Date: 20061013
  Serious: No
  Sender: FDA-Public Use
  Company Number: None

PATIENT
  Age: 28 Year
  Sex: Male

DRUGS (9)
  1. HYPERTONIC SALINE  7.5% [Suspect]
     Indication: INTRACRANIAL PRESSURE INCREASED
     Dosage: 250ML
     Dates: start: 20050826
  2. FENTANYL [Concomitant]
  3. POTASSIUM CHLORIDE [Concomitant]
  4. MIDAZOLAM HCL [Concomitant]
  5. SUCRALFATE [Concomitant]
  6. INSULIN [Concomitant]
  7. CLINDAMYCIN [Concomitant]
  8. PHENYTOIN [Concomitant]
  9. NSS [Concomitant]

REACTIONS (3)
  - BLOOD OSMOLARITY INCREASED [None]
  - DIABETES INSIPIDUS [None]
  - HYPERNATRAEMIA [None]
